FAERS Safety Report 5484928-X (Version None)
Quarter: 2007Q4

REPORT INFORMATION
  Report Type: 
  Country: None (occurrence: None)
  Receive Date: 20071011
  Receipt Date: 20060124
  Transmission Date: 20080405
  Serious: Yes (Death)
  Sender: FDA-Public Use
  Company Number: US021380

PATIENT
  Age: 52 Year
  Sex: Male

DRUGS (2)
  1. ACTIQ [Suspect]
     Indication: CANCER PAIN
     Dosage: 800 UG PRN, BUCCAL
     Route: 002
     Dates: end: 20060101
  2. DURAGESIC-100 [Concomitant]

REACTIONS (1)
  - DEATH [None]
